FAERS Safety Report 5455632-9 (Version None)
Quarter: 2007Q3

REPORT INFORMATION
  Report Type: 
  Country: None (occurrence: None)
  Receive Date: 20070918
  Receipt Date: 20070906
  Transmission Date: 20080115
  Serious: Yes (Other)
  Sender: FDA-Public Use
  Company Number: US-AMGEN-US242338

PATIENT
  Sex: Female

DRUGS (7)
  1. ENBREL [Suspect]
     Indication: RHEUMATOID ARTHRITIS
     Route: 058
     Dates: start: 20060707
  2. ZESTRIL [Concomitant]
     Route: 065
  3. INDOCIN [Concomitant]
     Route: 065
  4. FOLIC ACID [Concomitant]
     Route: 065
  5. VITAMIN B COMPLEX CAP [Concomitant]
     Route: 065
  6. ZANTAC 150 [Concomitant]
     Route: 065
  7. METHOTREXATE [Concomitant]
     Route: 048

REACTIONS (1)
  - FACIAL PALSY [None]
